FAERS Safety Report 17641323 (Version 2)
Quarter: 2020Q2

REPORT INFORMATION
  Report Type: Spontaneous
  Country: FR (occurrence: FR)
  Receive Date: 20200407
  Receipt Date: 20200520
  Transmission Date: 20200713
  Serious: Yes (Life-Threatening, Other)
  Sender: FDA-Public Use
  Company Number: FR-BAUSCH-BL-2020-009534

PATIENT
  Age: 40 Year
  Sex: Male

DRUGS (6)
  1. CELECOXIB. [Suspect]
     Active Substance: CELECOXIB
     Indication: MEDULLOBLASTOMA RECURRENT
     Dosage: 300 MG BID, 5 CYCLICAL
     Route: 065
  2. THALIDOMIDE [Suspect]
     Active Substance: THALIDOMIDE
     Indication: MEDULLOBLASTOMA RECURRENT
     Dosage: 100 MG/D, 5 CYCLICAL
     Route: 065
  3. ETOPOSIDE. [Suspect]
     Active Substance: ETOPOSIDE
     Indication: MEDULLOBLASTOMA RECURRENT
     Dosage: 100 MG/D D1-21, 5 CYCLICAL
     Route: 065
  4. FENOFIBRATE. [Suspect]
     Active Substance: FENOFIBRATE
     Indication: MEDULLOBLASTOMA RECURRENT
     Dosage: 160 MG/D, 5 CYCLICAL
     Route: 065
  5. BEVACIZUMAB. [Suspect]
     Active Substance: BEVACIZUMAB
     Indication: MEDULLOBLASTOMA RECURRENT
     Dosage: 10 MG/KG D1-D14-D21, 5 CYCLICAL
     Route: 065
  6. CYCLOPHOSPHAMIDE. [Suspect]
     Active Substance: CYCLOPHOSPHAMIDE
     Indication: MEDULLOBLASTOMA RECURRENT
     Dosage: 100 MG/D D22-42, 5 CYCLICAL
     Route: 065

REACTIONS (6)
  - Fatigue [Unknown]
  - Lymphopenia [Unknown]
  - Haematotoxicity [Unknown]
  - Renal impairment [Unknown]
  - Neutropenia [Unknown]
  - Pain in extremity [Unknown]
